FAERS Safety Report 5392168-8 (Version None)
Quarter: 2007Q3

REPORT INFORMATION
  Report Type: 
  Country: None (occurrence: None)
  Receive Date: 20070720
  Receipt Date: 20070711
  Transmission Date: 20080115
  Serious: Yes (Disabling)
  Sender: FDA-Public Use
  Company Number: JP-ASTRAZENECA-2007AP04112

PATIENT
  Age: 77 Year
  Sex: Male

DRUGS (1)
  1. MARCAINE HYDROCHLORIDE PRESERVATIVE FREE [Suspect]
     Indication: SPINAL ANAESTHESIA
     Route: 037
     Dates: start: 20070628, end: 20070628

REACTIONS (1)
  - CAUDA EQUINA SYNDROME [None]
